FAERS Safety Report 10151131 (Version 1)
Quarter: 2014Q2

REPORT INFORMATION
  Report Type: Spontaneous
  Country: US (occurrence: JP)
  Receive Date: 20140504
  Receipt Date: 20140504
  Transmission Date: 20141212
  Serious: Yes (Other)
  Sender: FDA-Public Use
  Company Number: 2014SP002459

PATIENT
  Sex: Female
  Weight: 64 kg

DRUGS (2)
  1. CISPLATIN [Suspect]
     Indication: UTERINE CANCER
  2. DOXORUBICIN [Suspect]
     Indication: UTERINE CANCER

REACTIONS (2)
  - Disease progression [Recovered/Resolved]
  - Uterine cancer [Recovered/Resolved]
